FAERS Safety Report 8379593-8 (Version None)
Quarter: 2012Q1

REPORT INFORMATION
  Report Type: 
  Country: None (occurrence: None)
  Receive Date: 20120323
  Receipt Date: 20110504
  Transmission Date: 20120608
  Serious: Yes (Disabling, Other)
  Sender: FDA-Public Use
  Company Number: 163-21880-11040897

PATIENT
  Age: 56 Year
  Sex: Female
  Weight: 84.7 kg

DRUGS (11)
  1. REVLIMID [Suspect]
     Indication: MULTIPLE MYELOMA
     Dosage: 25 MG, DAILY FOR 21 DAYS OF Q 28 DAYS, PO
     Route: 048
     Dates: start: 20100127, end: 20100301
  2. REVLIMID [Suspect]
     Indication: MULTIPLE MYELOMA
     Dosage: 25 MG, DAILY FOR 21 DAYS OF Q 28 DAYS, PO
     Route: 048
     Dates: start: 20110406, end: 20110415
  3. REVLIMID [Suspect]
     Indication: MULTIPLE MYELOMA
     Dosage: 25 MG, DAILY FOR 21 DAYS OF Q 28 DAYS, PO
     Route: 048
     Dates: start: 20110214, end: 20110328
  4. MSIR (MORPHINE SULFATE)(UNKNOWN) [Concomitant]
  5. VALTREX (VALACICLOVIR HYDROCHLORIDE) (UNKNOWN) [Concomitant]
  6. KLONIPIN (CLONAZEPAM)(UNKNOWN) [Concomitant]
  7. DEXAMETHASONE [Concomitant]
  8. NEURONTIN [Concomitant]
  9. MORPHINE [Concomitant]
  10. CYMBALTA [Concomitant]
  11. BUSPAR [Concomitant]

REACTIONS (4)
  - HYPOTENSION [None]
  - DIARRHOEA [None]
  - GAIT DISTURBANCE [None]
  - PRURITUS [None]
